FAERS Safety Report 12466553 (Version 1)
Quarter: 2016Q2

REPORT INFORMATION
  Report Type: Spontaneous
  Country: US (occurrence: US)
  Receive Date: 20160615
  Receipt Date: 20160615
  Transmission Date: 20160815
  Serious: Yes (Other)
  Sender: FDA-Public Use
  Company Number: US-BEH-2016070242

PATIENT
  Age: 51 Year
  Sex: Male

DRUGS (2)
  1. CLOBETASOL 0.05% [Suspect]
     Active Substance: CLOBETASOL
     Dosage: UNK, BID
     Route: 061
  2. HUMAN IMMUNOGLOBULIN IV (INN) [Suspect]
     Active Substance: HUMAN IMMUNOGLOBULIN G
     Indication: GUILLAIN-BARRE SYNDROME
     Route: 042

REACTIONS (3)
  - Dyshidrotic eczema [Recovering/Resolving]
  - Blister [Recovering/Resolving]
  - Rash pruritic [Recovering/Resolving]
